FAERS Safety Report 8221534-8 (Version None)
Quarter: 2012Q1

REPORT INFORMATION
  Report Type: 
  Country: None (occurrence: None)
  Receive Date: 20120316
  Receipt Date: 20120306
  Transmission Date: 20120608
  Serious: Yes (Hospitalization, Other)
  Sender: FDA-Public Use
  Company Number: KAD201201-000096

PATIENT
  Age: 54 Year
  Sex: Male
  Weight: 69.8539 kg

DRUGS (12)
  1. PEGASYS [Suspect]
     Indication: HEPATITIS C
     Dosage: 180 MCG A WEEK, SUBCUTANEOUS
     Route: 058
     Dates: start: 20111001
  2. LOSARTAN POTASSIUM [Concomitant]
  3. HYDROCHLOROTHIAZIDE [Concomitant]
  4. CALCIUM VITAMIN D [Concomitant]
  5. RIBAVIRIN [Suspect]
     Indication: HEPATITIS C
     Dosage: 1000MG, 3 PILLS MORNING, AND 2 PILLS EVENNIG ; 600 MG, 3 PILLS EVERY DAY
     Dates: start: 20111001
  6. POTASSIUM [Concomitant]
  7. INCIVEK [Suspect]
     Indication: HEPATITIS C
     Dosage: TWO DOSES THREE TIMES DAILY, ORAL
     Route: 048
     Dates: start: 20111001
  8. SPIRIVA [Concomitant]
  9. NEXIUM [Concomitant]
  10. XANAX [Concomitant]
  11. CARAFATE [Concomitant]
  12. XOPENEX [Concomitant]

REACTIONS (30)
  - PRURITUS [None]
  - ADVERSE EVENT [None]
  - BLOOD POTASSIUM ABNORMAL [None]
  - FATIGUE [None]
  - NAUSEA [None]
  - ARTHRALGIA [None]
  - ANXIETY [None]
  - DRY MOUTH [None]
  - DIARRHOEA [None]
  - PANCREATITIS [None]
  - WHITE BLOOD CELL COUNT DECREASED [None]
  - ANAEMIA [None]
  - DRY SKIN [None]
  - DYSGEUSIA [None]
  - ABDOMINAL PAIN UPPER [None]
  - CONDITION AGGRAVATED [None]
  - IRRITABILITY [None]
  - MALAISE [None]
  - ASTHMA [None]
  - WEIGHT DECREASED [None]
  - PANCREATIC ENZYMES INCREASED [None]
  - NEUTROPHIL COUNT DECREASED [None]
  - RASH GENERALISED [None]
  - HYPERSENSITIVITY [None]
  - PYREXIA [None]
  - SYNCOPE [None]
  - ALOPECIA [None]
  - PAIN [None]
  - VOMITING [None]
  - MOOD SWINGS [None]
